FAERS Safety Report 20474965 (Version 1)
Quarter: 2022Q1

REPORT INFORMATION
  Report Type: Spontaneous
  Country: US (occurrence: US)
  Receive Date: 20220215
  Receipt Date: 20220215
  Transmission Date: 20220423
  Serious: No
  Sender: FDA-Public Use
  Company Number: VAL-2021-0217

PATIENT

DRUGS (7)
  1. LASIX [Suspect]
     Active Substance: FUROSEMIDE
     Indication: Blood pressure measurement
     Dosage: 40 MG, BID
     Dates: start: 1985
  2. LASIX [Suspect]
     Active Substance: FUROSEMIDE
     Dosage: 80 MG, BID
     Route: 065
     Dates: start: 2021
  3. LASIX [Suspect]
     Active Substance: FUROSEMIDE
     Dosage: 60 MG, QD
     Dates: start: 2021
  4. ZOCOR [Concomitant]
     Active Substance: SIMVASTATIN
     Indication: Blood triglycerides increased
     Dosage: 20 MG, QD, AT NIGHT
  5. UMECLIDINIUM BROMIDE\VILANTEROL TRIFENATATE [Concomitant]
     Active Substance: UMECLIDINIUM BROMIDE\VILANTEROL TRIFENATATE
     Indication: Emphysema
     Dosage: ONE INHALE PER NIGHT
  6. SUDAFED                            /00076302/ [Concomitant]
     Indication: Product used for unknown indication
     Dosage: UNK, PRN
  7. COMPAZINE                          /00013302/ [Concomitant]
     Indication: Nausea
     Dosage: 10 MG, PRN

REACTIONS (6)
  - Lymphoedema [Not Recovered/Not Resolved]
  - Peripheral swelling [Unknown]
  - Pain in extremity [Unknown]
  - Feeling abnormal [Unknown]
  - Pollakiuria [Unknown]
  - Asthenia [Unknown]

NARRATIVE: CASE EVENT DATE: 20210101
